FAERS Safety Report 10611320 (Version 1)
Quarter: 2014Q4

REPORT INFORMATION
  Report Type: Spontaneous
  Country: JP (occurrence: None)
  Receive Date: 20141124
  Receipt Date: 20141124
  Transmission Date: 20150529
  Serious: Yes (Other)
  Sender: FDA-Public Use
  Company Number: JP-ZYDUS-005626

PATIENT
  Age: 67 Year
  Sex: Female

DRUGS (5)
  1. PEGINTERFERON ALFA-2B [Suspect]
     Active Substance: PEGINTERFERON ALFA-2B
     Indication: HEPATITIS C
     Dosage: 1.0WEEKS
  2. TACROLIMUS. [Concomitant]
     Active Substance: TACROLIMUS
  3. CICLOSPORIN (CICLOSPORIN) [Suspect]
     Active Substance: CYCLOSPORINE
  4. RIBAVIRIN. [Suspect]
     Active Substance: RIBAVIRIN
     Indication: HEPATITIS C
  5. TELAPREVIR (TELAPREVIR) [Suspect]
     Active Substance: TELAPREVIR

REACTIONS (6)
  - Malaise [None]
  - Decreased appetite [None]
  - Renal impairment [None]
  - Rash [None]
  - Anaemia [None]
  - Hepatitis C [None]
